FAERS Safety Report 7002331-8 (Version None)
Quarter: 2010Q3

REPORT INFORMATION
  Report Type: 
  Country: None (occurrence: None)
  Receive Date: 20100920
  Receipt Date: 20091001
  Transmission Date: 20110219
  Serious: Yes (Other)
  Sender: FDA-Public Use
  Company Number: US-ASTRAZENECA-2009UW03769

PATIENT
  Age: 557 Month
  Sex: Female
  Weight: 59.9 kg

DRUGS (4)
  1. SEROQUEL [Suspect]
     Indication: BIPOLAR DISORDER
     Route: 048
     Dates: start: 20070101, end: 20070901
  2. ABILIFY [Concomitant]
     Dates: start: 20080101
  3. GEODON [Concomitant]
     Dates: start: 20070101
  4. RISPERDAL [Concomitant]
     Dosage: 1MG,2MG
     Dates: start: 20080101

REACTIONS (3)
  - BLOOD GLUCOSE INCREASED [None]
  - DIABETES MELLITUS [None]
  - PANCREATITIS [None]
